FAERS Safety Report 11656232 (Version 1)
Quarter: 2015Q4

REPORT INFORMATION
  Report Type: Spontaneous
  Country: HR (occurrence: HR)
  Receive Date: 20151023
  Receipt Date: 20151023
  Transmission Date: 20160304
  Serious: Yes (Hospitalization)
  Sender: FDA-Public Use
  Company Number: HR-TEVA-600756ISR

PATIENT
  Age: 20 Year
  Sex: Female
  Weight: 78 kg

DRUGS (5)
  1. IMURAN [Suspect]
     Active Substance: AZATHIOPRINE
     Indication: IMMUNOMODULATORY THERAPY
     Dosage: 100 MILLIGRAM DAILY; 2X50 MG; 1X DNEVNO
     Route: 048
     Dates: start: 2000
  2. RANITIDINE [Concomitant]
     Active Substance: RANITIDINE\RANITIDINE HYDROCHLORIDE
     Route: 048
  3. PHENOBARBITON PLIVA TABLETE 100 MG [Concomitant]
     Indication: EPILEPSY
     Dosage: 50-0-100 MG; 50-0-100 MG
     Route: 048
     Dates: start: 2004
  4. TEGRETOL [Suspect]
     Active Substance: CARBAMAZEPINE
     Indication: EPILEPSY
     Dosage: 1200 MILLIGRAM DAILY; 2X600 MG; 2 TIMES PER DAY
     Route: 048
     Dates: start: 2000
  5. PLIVIT D3 [Concomitant]
     Active Substance: CHOLECALCIFEROL
     Dosage: 3 GTT DAILY;
     Route: 048

REACTIONS (1)
  - Hyperlipidaemia [Recovering/Resolving]

NARRATIVE: CASE EVENT DATE: 20150301
